FAERS Safety Report 4908889-4 (Version None)
Quarter: 2006Q1

REPORT INFORMATION
  Report Type: 
  Country: None (occurrence: None)
  Receive Date: 20060210
  Receipt Date: 20060131
  Transmission Date: 20060701
  Serious: Yes (Hospitalization)
  Sender: FDA-Public Use
  Company Number: PHEH2006US01556

PATIENT
  Age: 49 Year
  Sex: Male

DRUGS (1)
  1. ZELNORM [Suspect]
     Indication: CONSTIPATION
     Dosage: 6 MG, ONCE/SINGLE
     Dates: start: 20060126, end: 20060126

REACTIONS (3)
  - DIARRHOEA [None]
  - HAEMORRHOIDS [None]
  - HEART RATE INCREASED [None]
